FAERS Safety Report 8361736-3 (Version None)
Quarter: 2012Q2

REPORT INFORMATION
  Report Type: 
  Country: None (occurrence: None)
  Receive Date: 20120515
  Receipt Date: 20100927
  Transmission Date: 20120825
  Serious: Yes (Hospitalization)
  Sender: FDA-Public Use
  Company Number: US-GLAXOSMITHKLINE-A0884056A

PATIENT
  Age: 71 Year
  Sex: Male

DRUGS (7)
  1. HYZAAR [Concomitant]
  2. INSULIN [Concomitant]
  3. ZOCOR [Concomitant]
  4. ALBUTEROL [Concomitant]
  5. AVANDIA [Suspect]
     Indication: DIABETES MELLITUS
     Route: 048
     Dates: start: 19990101, end: 20000101
  6. ZESTRIL [Concomitant]
  7. THEOPHYLLINE [Concomitant]

REACTIONS (2)
  - CARDIAC FAILURE CONGESTIVE [None]
  - ATRIAL FIBRILLATION [None]
